FAERS Safety Report 8391067-7 (Version None)
Quarter: 2012Q2

REPORT INFORMATION
  Report Type: 
  Country: None (occurrence: None)
  Receive Date: 20120529
  Receipt Date: 20120516
  Transmission Date: 20120825
  Serious: Yes (Other)
  Sender: FDA-Public Use
  Company Number: US-JNJFOC-20120517347

PATIENT

DRUGS (6)
  1. PACLITAXEL [Suspect]
     Indication: BREAST CANCER
     Dosage: EVERY 14 DAYS FOR 4 CYCLES, CYCLE 5-8
     Route: 065
  2. HORMONAL TREATMENT NOS [Concomitant]
     Indication: BREAST CANCER
     Route: 065
  3. CYCLOPHOSPHAMIDE [Suspect]
     Indication: BREAST CANCER
     Dosage: EVERY 14 DAYS FOR 4 CYCLES
     Route: 065
  4. BEVACIZUMAB [Suspect]
     Indication: BREAST CANCER
     Dosage: 4 CYCLES (1-4, 5-8), 14 DAYS, 18 CYCLES IN ARM A (9-26)
     Route: 042
  5. DOXORUBICIN HCL [Suspect]
     Indication: BREAST CANCER
     Dosage: EVERY 14 DAYS FOR 4 CYCLES
     Route: 042
  6. RADIATION THERAPY NOS [Concomitant]
     Indication: BREAST CANCER
     Route: 065

REACTIONS (1)
  - LEUKOENCEPHALOPATHY [None]
